FAERS Safety Report 4946073-9 (Version None)
Quarter: 2006Q1

REPORT INFORMATION
  Report Type: 
  Country: None (occurrence: None)
  Receive Date: 20060316
  Receipt Date: 20060308
  Transmission Date: 20060701
  Serious: Yes (Disabling)
  Sender: FDA-Public Use
  Company Number: US-MERCK-0603USA01514

PATIENT
  Sex: Female

DRUGS (1)
  1. VIOXX [Suspect]
     Route: 001
     Dates: start: 20000101, end: 20000101

REACTIONS (3)
  - CARDIAC FAILURE CONGESTIVE [None]
  - CARDIOVASCULAR DISORDER [None]
  - PAIN [None]
